FAERS Safety Report 19815581 (Version 4)
Quarter: 2022Q1

REPORT INFORMATION
  Report Type: Spontaneous
  Country: CA (occurrence: CA)
  Receive Date: 20210909
  Receipt Date: 20220302
  Transmission Date: 20220423
  Serious: Yes (Hospitalization, Other)
  Sender: FDA-Public Use
  Company Number: CA-CELGENE-CAN-20210707338

PATIENT
  Age: 73 Year
  Sex: Male

DRUGS (25)
  1. AZACITIDINE [Suspect]
     Active Substance: AZACITIDINE
     Indication: Acute myeloid leukaemia
     Route: 065
     Dates: start: 20210621
  2. PEVONEDISTAT [Suspect]
     Active Substance: PEVONEDISTAT
     Indication: Acute myeloid leukaemia
     Route: 065
     Dates: start: 20210621
  3. VENETOCLAX [Suspect]
     Active Substance: VENETOCLAX
     Indication: Acute myeloid leukaemia
     Route: 065
     Dates: start: 20210621
  4. FUROSEMIDE [Concomitant]
     Active Substance: FUROSEMIDE
     Indication: Coronary artery disease
     Route: 065
     Dates: start: 2014, end: 20210710
  5. FUROSEMIDE [Concomitant]
     Active Substance: FUROSEMIDE
     Indication: Dyspnoea
     Route: 065
     Dates: start: 20210712, end: 20210713
  6. SENNA [Concomitant]
     Active Substance: SENNA LEAF\SENNOSIDES\SENNOSIDES A AND B
     Indication: Constipation
     Route: 065
     Dates: start: 20210710
  7. POLYETHYLENE GLYCOLS [Concomitant]
     Active Substance: POLYETHYLENE GLYCOLS
     Indication: Constipation
     Route: 065
     Dates: start: 20210710, end: 20210711
  8. PRAVASTATIN SODIUM [Concomitant]
     Active Substance: PRAVASTATIN SODIUM
     Indication: Coronary artery disease
     Route: 065
     Dates: start: 2014
  9. IMIPENEM AND CILASTATIN [Concomitant]
     Active Substance: CILASTATIN SODIUM\IMIPENEM
     Indication: Enterobacter bacteraemia
     Route: 065
     Dates: start: 20210707, end: 20210711
  10. PIPERACILLIN AND TAZOBACTAM [Concomitant]
     Active Substance: PIPERACILLIN SODIUM\TAZOBACTAM SODIUM
     Indication: Enterobacter bacteraemia
     Route: 065
     Dates: start: 20210706, end: 20210713
  11. MEROPENEM [Concomitant]
     Active Substance: MEROPENEM
     Indication: Enterobacter bacteraemia
     Route: 065
     Dates: start: 20210713, end: 20210723
  12. VANCOMYCIN [Concomitant]
     Active Substance: VANCOMYCIN
     Indication: Enterobacter bacteraemia
     Route: 065
     Dates: start: 20210706, end: 20210706
  13. PROCHLORPERAZINE [Concomitant]
     Active Substance: PROCHLORPERAZINE
     Indication: Prophylaxis of nausea and vomiting
     Route: 065
     Dates: start: 20210707, end: 20210707
  14. HYDROCORTISONE [Concomitant]
     Active Substance: HYDROCORTISONE
     Indication: Osteoarthritis
     Route: 065
     Dates: start: 20210711, end: 20210714
  15. OXYCODONE [Concomitant]
     Active Substance: OXYCODONE
     Indication: Osteoarthritis
     Route: 065
     Dates: start: 20210707
  16. LANSOPRAZOLE [Concomitant]
     Active Substance: LANSOPRAZOLE
     Indication: Peptic ulcer
     Route: 065
     Dates: start: 20210603
  17. ALLOPURINOL [Concomitant]
     Active Substance: ALLOPURINOL
     Indication: Prophylaxis
     Route: 065
     Dates: start: 20210618, end: 20210721
  18. ATENOLOL [Concomitant]
     Active Substance: ATENOLOL
     Indication: Pulmonary hypertension
     Route: 065
     Dates: start: 202104
  19. SODIUM CHLORIDE [Concomitant]
     Active Substance: SODIUM CHLORIDE
     Indication: Supplementation therapy
     Route: 065
     Dates: start: 20210709, end: 20210713
  20. SODIUM PHOSPHATE [Concomitant]
     Active Substance: SODIUM PHOSPHATE
     Indication: Supplementation therapy
     Route: 065
     Dates: start: 20210711, end: 20210711
  21. ACETAMINOPHEN [Concomitant]
     Active Substance: ACETAMINOPHEN
     Indication: Supportive care
     Route: 065
     Dates: start: 20210706, end: 20210708
  22. IBUPROFEN [Concomitant]
     Active Substance: IBUPROFEN
     Indication: Supportive care
     Route: 065
     Dates: start: 20210706, end: 20210706
  23. LORAZEPAM [Concomitant]
     Active Substance: LORAZEPAM
     Indication: Supportive care
     Route: 065
     Dates: start: 20210706, end: 20210706
  24. POLYETHYLENE GLYCOL [Concomitant]
     Active Substance: POLYETHYLENE GLYCOL
     Indication: Product used for unknown indication
     Route: 065
     Dates: start: 20210710, end: 20210711
  25. LASIX [Concomitant]
     Active Substance: FUROSEMIDE
     Indication: Supplementation therapy
     Route: 065
     Dates: start: 20210712, end: 20210713

REACTIONS (1)
  - Bronchopulmonary aspergillosis [Recovered/Resolved]

NARRATIVE: CASE EVENT DATE: 20210719
